FAERS Safety Report 8873570 (Version 1)
Quarter: 2012Q4

REPORT INFORMATION
  Report Type: 
  Country: US (occurrence: US)
  Receive Date: 20121026
  Receipt Date: 20121026
  Transmission Date: 20130627
  Serious: No
  Sender: FDA-Public Use
  Company Number: US-AMGEN-USASP2012045719

PATIENT
  Age: 46 Year
  Sex: Male
  Weight: 117.91 kg

DRUGS (7)
  1. ENBREL [Suspect]
     Indication: PRODUCT USED FOR UNKNOWN INDICATION
     Dosage: 50 mg, qwk
     Route: 058
  2. ENALAPRIL [Concomitant]
     Dosage: 2.5 mg, UNK
  3. GEMFIBROZIL [Concomitant]
     Dosage: 600 mg, UNK
  4. FLUOXETINE [Concomitant]
     Dosage: 10 mg, UNK
  5. VALIUM                             /00017001/ [Concomitant]
     Dosage: 2 mg, UNK
  6. SULFASALAZIN [Concomitant]
     Dosage: 500 mg, UNK
  7. NORCO [Concomitant]
     Dosage: 5-325 mg

REACTIONS (2)
  - Abdominal distension [Unknown]
  - Weight increased [Unknown]
